FAERS Safety Report 25527190 (Version 2)
Quarter: 2025Q4

REPORT INFORMATION
  Report Type: Spontaneous
  Country: CA (occurrence: CA)
  Receive Date: 20250708
  Receipt Date: 20251011
  Transmission Date: 20260118
  Serious: Yes (Hospitalization)
  Sender: CELLTRION
  Company Number: CA-CELLTRION INC.-2025CA018513

PATIENT

DRUGS (3)
  1. INFLIXIMAB [Suspect]
     Active Substance: INFLIXIMAB
     Indication: Crohn^s disease
     Dosage: 1000 MG EVERY 4 WEEKS
     Route: 042
     Dates: start: 20250606
  2. INFLIXIMAB [Suspect]
     Active Substance: INFLIXIMAB
     Dosage: 1000 MG EVERY 4 WEEKS
     Route: 042
     Dates: start: 20250828
  3. INFLIXIMAB [Suspect]
     Active Substance: INFLIXIMAB
     Dosage: 1000 MG EVERY 4 WEEKS
     Route: 042
     Dates: start: 20251001

REACTIONS (3)
  - Post procedural haemorrhage [Recovered/Resolved]
  - Off label use [Unknown]
  - Inappropriate schedule of product administration [Unknown]

NARRATIVE: CASE EVENT DATE: 20250601
